FAERS Safety Report 5244843-3 (Version None)
Quarter: 2007Q1

REPORT INFORMATION
  Report Type: 
  Country: None (occurrence: None)
  Receive Date: 20070216
  Receipt Date: 20070129
  Transmission Date: 20070707
  Serious: Yes (Hospitalization, Other)
  Sender: FDA-Public Use
  Company Number: S07-CAN-00428-01

PATIENT
  Age: 90 Year
  Sex: Male

DRUGS (4)
  1. EBIXA (MEMANTINE) [Suspect]
     Indication: DEMENTIA ALZHEIMER'S TYPE
     Dosage: 5 MG QD; PO
     Route: 048
     Dates: start: 20061208, end: 20061216
  2. EXELON [Concomitant]
  3. LISINOPRIL [Concomitant]
  4. CALCITONIN-SALMON [Concomitant]

REACTIONS (3)
  - HEMIPARESIS [None]
  - SUBDURAL HAEMATOMA [None]
  - TRANSIENT ISCHAEMIC ATTACK [None]
